FAERS Safety Report 11874837 (Version 1)
Quarter: 2015Q4

REPORT INFORMATION
  Report Type: Report from Study
  Country: US (occurrence: US)
  Receive Date: 20151229
  Receipt Date: 20151229
  Transmission Date: 20160305
  Serious: No
  Sender: FDA-Public Use
  Company Number: PHEH2015US002794

PATIENT
  Sex: Female

DRUGS (2)
  1. TOBI [Suspect]
     Active Substance: TOBRAMYCIN
     Indication: BRONCHIECTASIS
     Dosage: 1 DF, BID
     Route: 055
  2. TOBI [Suspect]
     Active Substance: TOBRAMYCIN
     Dosage: 1 DF, QD,(1 VIAL ONCE A DAY, 2 WEEKS ON AND 2 WEEKS OFF)
     Route: 055

REACTIONS (2)
  - Nasopharyngitis [Unknown]
  - Incorrect dose administered [Unknown]
